FAERS Safety Report 13813651 (Version 1)
Quarter: 2017Q3

REPORT INFORMATION
  Report Type: Spontaneous
  Country: US (occurrence: US)
  Receive Date: 20170731
  Receipt Date: 20170731
  Transmission Date: 20171127
  Serious: No
  Sender: FDA-Public Use
  Company Number: US-ASTRAZENECA-2017SE77158

PATIENT
  Age: 82 Year
  Sex: Female
  Weight: 56.2 kg

DRUGS (4)
  1. SINGULAIR [Concomitant]
     Active Substance: MONTELUKAST SODIUM
  2. BEVESPI AEROSPHERE [Suspect]
     Active Substance: FORMOTEROL FUMARATE\GLYCOPYRROLATE
     Indication: COUGH
     Dosage: 9/4.8 UG, TWO INHALATIONS TWICE DAILY
     Route: 055
     Dates: start: 20170601
  3. BEVESPI AEROSPHERE [Suspect]
     Active Substance: FORMOTEROL FUMARATE\GLYCOPYRROLATE
     Indication: COUGH
     Dosage: 9/4.8 UG, ONE OR TWO PUFFS ONCE DAILY
     Route: 055
  4. MELATONIN [Concomitant]
     Active Substance: MELATONIN
     Dates: start: 201707

REACTIONS (8)
  - Feeling jittery [Unknown]
  - Memory impairment [Unknown]
  - Insomnia [Not Recovered/Not Resolved]
  - Product use issue [Unknown]
  - Cough [Not Recovered/Not Resolved]
  - Off label use [Unknown]
  - Syncope [Unknown]
  - Mental impairment [Unknown]

NARRATIVE: CASE EVENT DATE: 2017
